FAERS Safety Report 13637908 (Version 1)
Quarter: 2017Q2

REPORT INFORMATION
  Report Type: Spontaneous
  Country: FR (occurrence: FR)
  Receive Date: 20170609
  Receipt Date: 20170609
  Transmission Date: 20170830
  Serious: Yes (Life-Threatening, Hospitalization, Other)
  Sender: FDA-Public Use
  Company Number: FR-BRISTOL-MYERS SQUIBB COMPANY-BMS-2017-049572

PATIENT
  Age: 83 Year
  Sex: Female
  Weight: 111 kg

DRUGS (1)
  1. COUMADINE [Suspect]
     Active Substance: WARFARIN SODIUM
     Indication: ATRIAL FIBRILLATION
     Dosage: 2 TAB, QD
     Route: 048

REACTIONS (9)
  - Haemorrhagic anaemia [Recovered/Resolved]
  - Anticoagulation drug level above therapeutic [Recovered/Resolved]
  - Overdose [Recovered/Resolved]
  - Lower gastrointestinal haemorrhage [Unknown]
  - Packed red blood cell transfusion [Unknown]
  - Acute kidney injury [Unknown]
  - Transfusion [Unknown]
  - Melaena [Recovered/Resolved]
  - Acute pulmonary oedema [Unknown]

NARRATIVE: CASE EVENT DATE: 20170225
